FAERS Safety Report 12111720 (Version 1)
Quarter: 2016Q1

REPORT INFORMATION
  Report Type: Spontaneous
  Country: US (occurrence: US)
  Receive Date: 20160224
  Receipt Date: 20160224
  Transmission Date: 20160526
  Serious: No
  Sender: FDA-Public Use
  Company Number: US-ELI_LILLY_AND_COMPANY-US201601009828

PATIENT
  Sex: Female

DRUGS (4)
  1. BAYER ASPIRIN [Concomitant]
     Active Substance: ASPIRIN
  2. TOPRA [Concomitant]
  3. POTASSIUM [Concomitant]
     Active Substance: POTASSIUM
  4. HUMALOG MIX75/25 [Suspect]
     Active Substance: INSULIN LISPRO
     Indication: TYPE 2 DIABETES MELLITUS
     Dosage: 80 U, TID
     Route: 065
     Dates: start: 2005, end: 201509

REACTIONS (3)
  - Dyspnoea [Unknown]
  - Cardiac flutter [Unknown]
  - Hypertension [Unknown]
